FAERS Safety Report 17109810 (Version 8)
Quarter: 2023Q4

REPORT INFORMATION
  Report Type: Report from Study
  Country: DE (occurrence: DE)
  Receive Date: 20191204
  Receipt Date: 20231018
  Transmission Date: 20240109
  Serious: Yes (Other)
  Sender: FDA-Public Use
  Company Number: DE-002147023-PHHY2019DE150391

PATIENT
  Age: 57 Year
  Sex: Female
  Weight: 70 kg

DRUGS (16)
  1. FULVESTRANT [Suspect]
     Active Substance: FULVESTRANT
     Indication: Breast cancer metastatic
     Dosage: 500 MILLIGRAM, QD (EVERY 2 WEEKS)
     Route: 030
     Dates: start: 20190408, end: 20190424
  2. FULVESTRANT [Suspect]
     Active Substance: FULVESTRANT
     Dosage: 500 MG
     Route: 065
     Dates: start: 20190621
  3. FULVESTRANT [Suspect]
     Active Substance: FULVESTRANT
     Dosage: 500 MILLIGRAM, QD
     Route: 030
     Dates: start: 20190424, end: 20190709
  4. FULVESTRANT [Suspect]
     Active Substance: FULVESTRANT
     Dosage: 500 MILLIGRAM, QD
     Route: 030
     Dates: start: 20190408, end: 20190424
  5. LETROZOLE [Suspect]
     Active Substance: LETROZOLE
     Indication: Breast cancer metastatic
     Dosage: 2.5 MILLIGRAM, QD
     Route: 048
     Dates: start: 20190123, end: 20190408
  6. LETROZOLE [Suspect]
     Active Substance: LETROZOLE
     Dosage: 3 MILLIGRAM, QD
     Route: 048
     Dates: start: 20190123, end: 20190408
  7. LETROZOLE [Suspect]
     Active Substance: LETROZOLE
     Dosage: 190 MILLIGRAM
     Route: 065
  8. LETROZOLE [Suspect]
     Active Substance: LETROZOLE
     Dosage: 2.5 MILLIGRAM, QD
     Route: 048
     Dates: start: 20190123, end: 20190423
  9. LETROZOLE [Suspect]
     Active Substance: LETROZOLE
     Dosage: 3 MILLIGRAM, QD
     Route: 048
     Dates: start: 20190123, end: 20190423
  10. KISQALI [Suspect]
     Active Substance: RIBOCICLIB
     Indication: Breast cancer metastatic
     Dosage: 600 MG, QD (SCHEME 21 DAYS INTAKE, 7 DAYS PAUSE)
     Route: 048
     Dates: start: 20190123, end: 20190423
  11. KISQALI [Suspect]
     Active Substance: RIBOCICLIB
     Dosage: 600 MILLIGRAM, QD, SCHEME 21 DAYS I
     Route: 048
     Dates: start: 20190710, end: 20190718
  12. KISQALI [Suspect]
     Active Substance: RIBOCICLIB
     Dosage: 400 MILLIGRAM, QD, SCHEME 21 DAYS INTAKE, 7 DAYS
     Route: 048
     Dates: start: 20190424, end: 20190709
  13. XGEVA [Concomitant]
     Active Substance: DENOSUMAB
     Indication: Product used for unknown indication
     Dosage: UNK
     Route: 065
  14. XGEVA [Concomitant]
     Active Substance: DENOSUMAB
     Dosage: UNK
     Route: 065
  15. BISOPROLOL FUMARATE\HYDROCHLOROTHIAZIDE [Concomitant]
     Active Substance: BISOPROLOL FUMARATE\HYDROCHLOROTHIAZIDE
     Indication: Product used for unknown indication
     Dosage: UNK
     Route: 065
  16. BISOPROLOL FUMARATE\HYDROCHLOROTHIAZIDE [Concomitant]
     Active Substance: BISOPROLOL FUMARATE\HYDROCHLOROTHIAZIDE
     Dosage: UNK
     Route: 065

REACTIONS (5)
  - Abdominal distension [Recovered/Resolved]
  - Chills [Recovered/Resolved]
  - Rash pruritic [Recovered/Resolved]
  - Erythema [Recovered/Resolved]
  - Rash [Recovered/Resolved]

NARRATIVE: CASE EVENT DATE: 20190417
